FAERS Safety Report 17653888 (Version 1)
Quarter: 2020Q2

REPORT INFORMATION
  Report Type: Spontaneous
  Country: US (occurrence: US)
  Receive Date: 20200410
  Receipt Date: 20200410
  Transmission Date: 20200713
  Serious: No
  Sender: FDA-Public Use
  Company Number: US-GLAXOSMITHKLINE-US2020058357

PATIENT
  Age: 95 Year
  Sex: Male

DRUGS (2)
  1. TAMSULOSIN [Concomitant]
     Active Substance: TAMSULOSIN
  2. BREO ELLIPTA [Suspect]
     Active Substance: FLUTICASONE FUROATE\VILANTEROL TRIFENATATE
     Indication: PRODUCT USED FOR UNKNOWN INDICATION
     Dosage: 1 PUFF(S), QD
     Route: 065
     Dates: start: 202003

REACTIONS (1)
  - Nocturia [Not Recovered/Not Resolved]

NARRATIVE: CASE EVENT DATE: 202003
